FAERS Safety Report 19300101 (Version 1)
Quarter: 2021Q2

REPORT INFORMATION
  Report Type: Spontaneous
  Country: US (occurrence: US)
  Receive Date: 20210525
  Receipt Date: 20210525
  Transmission Date: 20210717
  Serious: No
  Sender: FDA-Public Use
  Company Number: US-TEVA-2021-US-1909515

PATIENT
  Age: 59 Year
  Sex: Female
  Weight: 95.25 kg

DRUGS (5)
  1. AUSTEDO [Suspect]
     Active Substance: DEUTETRABENAZINE
     Indication: TARDIVE DYSKINESIA
     Dosage: 24 MILLIGRAM DAILY;
     Route: 065
     Dates: start: 20210420
  2. LEVOTHYROXINE. [Concomitant]
     Active Substance: LEVOTHYROXINE
  3. SULFASALAZINE. [Concomitant]
     Active Substance: SULFASALAZINE
  4. AUSTEDO [Suspect]
     Active Substance: DEUTETRABENAZINE
     Indication: AKATHISIA
  5. LATUDA [Suspect]
     Active Substance: LURASIDONE HYDROCHLORIDE
     Route: 065

REACTIONS (6)
  - Akathisia [Unknown]
  - pH urine increased [Unknown]
  - Drug titration [Unknown]
  - Depressed mood [Unknown]
  - Product use in unapproved indication [Unknown]
  - Urine analysis abnormal [Unknown]

NARRATIVE: CASE EVENT DATE: 2021
